FAERS Safety Report 4345769-X (Version None)
Quarter: 2004Q2

REPORT INFORMATION
  Report Type: 
  Country: None (occurrence: None)
  Receive Date: 20040421
  Receipt Date: 20040415
  Transmission Date: 20050107
  Serious: No
  Sender: FDA-Public Use
  Company Number: 2004-03-0015

PATIENT
  Sex: Female

DRUGS (2)
  1. PEG-INTERFERON INJECTABLE [Suspect]
     Indication: HEPATITIS C
  2. REBETOL [Suspect]
     Indication: HEPATITIS C
     Dosage: ORAL

REACTIONS (2)
  - DYSPNOEA [None]
  - PULMONARY FIBROSIS [None]
